FAERS Safety Report 6428726-9 (Version None)
Quarter: 2009Q4

REPORT INFORMATION
  Report Type: 
  Country: None (occurrence: None)
  Receive Date: 20091104
  Receipt Date: 20091104
  Transmission Date: 20100525
  Serious: No
  Sender: FDA-Public Use
  Company Number: None

PATIENT
  Age: 57 Year
  Sex: Female
  Weight: 95 kg

DRUGS (3)
  1. WARFARIN SODIUM [Suspect]
     Indication: AORTIC VALVE REPLACEMENT
     Dosage: 2 MG EVERY DAY PO
     Route: 048
     Dates: start: 20000822, end: 20090710
  2. WARFARIN SODIUM [Suspect]
     Indication: MITRAL VALVE REPLACEMENT
     Dosage: 2 MG EVERY DAY PO
     Route: 048
     Dates: start: 20000822, end: 20090710
  3. ENOXAPARIN [Suspect]
     Dosage: 100 MG BID SQ
     Route: 058
     Dates: start: 20090707, end: 20090711

REACTIONS (3)
  - INTERNATIONAL NORMALISED RATIO INCREASED [None]
  - RENAL DISORDER [None]
  - SUBDURAL HAEMATOMA [None]
